FAERS Safety Report 4977658-1 (Version None)
Quarter: 2006Q2

REPORT INFORMATION
  Report Type: 
  Country: None (occurrence: None)
  Receive Date: 20060420
  Receipt Date: 20051202
  Transmission Date: 20061013
  Serious: No
  Sender: FDA-Public Use
  Company Number: US-GLAXOSMITHKLINE-A0585572A

PATIENT
  Sex: Female

DRUGS (1)
  1. LITHIUM CARBONATE [Suspect]
     Indication: DRUG USE FOR UNKNOWN INDICATION
     Dosage: 450MG TWICE PER DAY
     Route: 048

REACTIONS (4)
  - DRUG INEFFECTIVE [None]
  - INSOMNIA [None]
  - THIRST [None]
  - TREMOR [None]
